FAERS Safety Report 9145822 (Version 1)
Quarter: 2013Q1

REPORT INFORMATION
  Report Type: Spontaneous
  Country: US (occurrence: US)
  Receive Date: 20130307
  Receipt Date: 20130307
  Transmission Date: 20140127
  Serious: Yes (Hospitalization, Disabling, Other)
  Sender: FDA-Public Use
  Company Number: US-009507513-1105USA03755

PATIENT
  Sex: Female

DRUGS (4)
  1. FOSAMAX [Suspect]
     Indication: OSTEOPOROSIS
     Dosage: UNK UNK, QW
     Route: 048
     Dates: start: 200404, end: 200511
  2. FOSAMAX [Suspect]
     Dosage: 70 MG, QW
     Route: 048
     Dates: start: 20070306
  3. FOSAMAX PLUS D [Suspect]
     Indication: OSTEOPOROSIS
     Dosage: 70/2800
     Route: 048
     Dates: start: 20051230, end: 20091017
  4. FOSAMAX [Suspect]
     Dosage: 70 MG, QW
     Route: 048
     Dates: start: 20110705, end: 20110901

REACTIONS (19)
  - Femur fracture [Unknown]
  - Arthritis [Not Recovered/Not Resolved]
  - Impaired healing [Unknown]
  - Hypertension [Unknown]
  - Arthropathy [Unknown]
  - Carpal tunnel syndrome [Unknown]
  - Adverse event [Unknown]
  - Fracture nonunion [Unknown]
  - Fall [Unknown]
  - Foot deformity [Unknown]
  - Pain [Unknown]
  - Osteopenia [Unknown]
  - Splenic cyst [Unknown]
  - Cholecystitis [Unknown]
  - Lymphangioma [Unknown]
  - Cyst [Unknown]
  - Device failure [Unknown]
  - Epicondylitis [Unknown]
  - Scoliosis [Unknown]
